FAERS Safety Report 12260350 (Version 2)
Quarter: 2017Q2

REPORT INFORMATION
  Report Type: Spontaneous
  Country: US (occurrence: US)
  Receive Date: 20160412
  Receipt Date: 20170405
  Transmission Date: 20170830
  Serious: No
  Sender: FDA-Public Use
  Company Number: US-SA-2016SA002121

PATIENT
  Sex: Female
  Weight: 90 kg

DRUGS (1)
  1. CHILDREN^S ALLERGY, ORALLY DISINTEGRATING TABLETS [Suspect]
     Active Substance: FEXOFENADINE HYDROCHLORIDE
     Indication: MULTIPLE ALLERGIES
     Dosage: FORMULATION: CHEWABLE
     Route: 065

REACTIONS (3)
  - Dyspnoea [Recovered/Resolved]
  - Choking sensation [Recovered/Resolved]
  - Foreign body [Unknown]
